FAERS Safety Report 7580790-X (Version None)
Quarter: 2011Q2

REPORT INFORMATION
  Report Type: 
  Country: None (occurrence: None)
  Receive Date: 20110629
  Receipt Date: 20110627
  Transmission Date: 20111010
  Serious: Yes (Other)
  Sender: FDA-Public Use
  Company Number: US-PFIZER INC-2011142439

PATIENT
  Sex: Female

DRUGS (2)
  1. ADVIL LIQUI-GELS [Suspect]
     Dosage: 200 MG, UNK
     Route: 048
  2. ADVIL MIGRAINE LIQUI-GELS [Suspect]
     Dosage: 200 MG, UNK
     Route: 048
     Dates: start: 20110624, end: 20110601

REACTIONS (6)
  - LUNG INFECTION [None]
  - IMMUNE SYSTEM DISORDER [None]
  - STOMATITIS [None]
  - OEDEMA PERIPHERAL [None]
  - SOMNOLENCE [None]
  - MALAISE [None]
